FAERS Safety Report 8607358-8 (Version None)
Quarter: 2012Q3

REPORT INFORMATION
  Report Type: 
  Country: None (occurrence: None)
  Receive Date: 20120803
  Receipt Date: 20120724
  Transmission Date: 20120928
  Serious: Yes (Other)
  Sender: FDA-Public Use
  Company Number: DSA_58721_2012

PATIENT
  Age: 70 Year

DRUGS (3)
  1. FLUOROURACIL [Suspect]
     Indication: GASTRIC CANCER
     Dosage: 500 MG/M2, EVERY 3 WEEKS, DAYS 1-5 INTRAVENOUS (NOT OTHERWISE SPECIFIED)
     Route: 042
  2. PACLITAXEL [Suspect]
     Indication: GASTRIC CANCER
     Dosage: 60, MG/M2, DAYS 1, 8, 15 INTRAVENOUS (NOT OTHERWISE SPECIFIED)
     Route: 042
  3. CISPLATIN [Suspect]
     Indication: GASTRIC CANCER
     Dosage: 15 MG/M2, DAYS 1-5 INTRAVENOUS (NOT OTHERWISE SPECIFIED)
     Route: 040

REACTIONS (1)
  - BONE MARROW FAILURE [None]
